FAERS Safety Report 10224277 (Version 1)
Quarter: 2014Q2

REPORT INFORMATION
  Report Type: Spontaneous
  Country: FR (occurrence: FR)
  Receive Date: 20140609
  Receipt Date: 20140609
  Transmission Date: 20141212
  Serious: Yes (Life-Threatening)
  Sender: FDA-Public Use
  Company Number: FR-NOVOPROD-412162

PATIENT
  Age: 71 Year
  Sex: Male

DRUGS (1)
  1. VICTOZA [Suspect]
     Indication: INSULIN-REQUIRING TYPE 2 DIABETES MELLITUS
     Dosage: 1.2 MG, QD
     Route: 058
     Dates: start: 20101109, end: 201405

REACTIONS (1)
  - Hepatic cancer [Not Recovered/Not Resolved]
